FAERS Safety Report 9248979 (Version 1)
Quarter: 2013Q1

REPORT INFORMATION
  Report Type: Spontaneous
  Country: US (occurrence: None)
  Receive Date: 20130305
  Receipt Date: 20130305
  Transmission Date: 20140127
  Serious: Yes (Other)
  Sender: FDA-Public Use
  Company Number: 163-21880-12100286

PATIENT
  Age: 70 Year
  Sex: Male
  Weight: 65.77 kg

DRUGS (13)
  1. REVLIMID [Suspect]
     Indication: PLASMA CELL MYELOMA
     Dosage: 25MG, 21 IN 21 D, PO
     Route: 048
     Dates: start: 200902
  2. ACYCLOVIR (ACICLOVIR) (ACICLOVIR) [Concomitant]
  3. ASPIRIN (ACETYLSALICYLIC ACID) [Concomitant]
  4. AVODART (DUTADTERIDE) [Concomitant]
  5. COMPLEX (BECOSYM FORTE) [Concomitant]
  6. BACTRIM (BACTRIM) [Concomitant]
  7. CALCIUM (CALCIUM) [Concomitant]
  8. CO Q 10 (UBIDECARENONE) [Concomitant]
  9. DEXAMETHASONE (DEXAMETHASONE) [Concomitant]
  10. FISH OIL (FISH OIL) [Concomitant]
  11. GLUCOSAMINE (GLUCOSAMINE) [Concomitant]
  12. VITAMINS [Concomitant]
  13. VITAMIN B6 (PYRIDOXINE HYDROCHLORIDE) [Concomitant]

REACTIONS (1)
  - Cough [None]
